APPROVED DRUG PRODUCT: POTASSIUM CHLORIDE
Active Ingredient: POTASSIUM CHLORIDE
Strength: 2MEQ/ML
Dosage Form/Route: INJECTABLE;INJECTION
Application: A089163 | Product #001
Applicant: WATSON LABORATORIES INC
Approved: Mar 10, 1988 | RLD: No | RS: No | Type: DISCN